FAERS Safety Report 7674894-0 (Version None)
Quarter: 2011Q3

REPORT INFORMATION
  Report Type: 
  Country: None (occurrence: None)
  Receive Date: 20110810
  Receipt Date: 20110728
  Transmission Date: 20111222
  Serious: Yes (Hospitalization)
  Sender: FDA-Public Use
  Company Number: IT-ELI_LILLY_AND_COMPANY-IT201107007833

PATIENT
  Sex: Male

DRUGS (6)
  1. ORUDIS [Concomitant]
  2. LYRICA [Concomitant]
     Indication: NEURALGIA
     Dosage: 75 MG, QD
     Route: 048
     Dates: start: 20110716, end: 20110719
  3. ARTROSILENE [Concomitant]
     Indication: PAIN
     Dosage: 160 MG, QD
     Route: 042
     Dates: start: 20110716, end: 20110719
  4. CYMBALTA [Suspect]
     Indication: DIABETIC NEUROPATHY
     Dosage: 30 MG, QD
     Route: 048
     Dates: start: 20110716, end: 20110719
  5. ZANTAC [Concomitant]
     Indication: GASTRITIS
     Dosage: 50 MG, QD
     Route: 042
     Dates: start: 20110716, end: 20110719
  6. METFORAL [Concomitant]
     Indication: TYPE 2 DIABETES MELLITUS
     Dosage: 850 MG, UNK
     Route: 048
     Dates: start: 20110716, end: 20110719

REACTIONS (4)
  - URTICARIA [None]
  - HYPERHIDROSIS [None]
  - ANGIOEDEMA [None]
  - HYPOTENSION [None]
